FAERS Safety Report 10203652 (Version 3)
Quarter: 2014Q3

REPORT INFORMATION
  Report Type: Spontaneous
  Country: US (occurrence: US)
  Receive Date: 20140529
  Receipt Date: 20140825
  Transmission Date: 20150326
  Serious: Yes (Life-Threatening, Hospitalization)
  Sender: FDA-Public Use
  Company Number: US-JNJFOC-20140517583

PATIENT
  Age: 81 Year
  Sex: Male
  Weight: 86 kg

DRUGS (31)
  1. XARELTO [Suspect]
     Active Substance: RIVAROXABAN
     Indication: CEREBROVASCULAR ACCIDENT PROPHYLAXIS
     Route: 048
     Dates: start: 20140107, end: 20140204
  2. XARELTO [Suspect]
     Active Substance: RIVAROXABAN
     Indication: ATRIAL FIBRILLATION
     Route: 048
     Dates: start: 20140107, end: 20140204
  3. NORVASC [Concomitant]
     Active Substance: AMLODIPINE BESYLATE
     Indication: BLOOD PRESSURE
     Route: 048
     Dates: start: 20140107, end: 20140107
  4. NORVASC [Concomitant]
     Active Substance: AMLODIPINE BESYLATE
     Indication: BLOOD PRESSURE
     Route: 048
  5. RAMIPRIL. [Concomitant]
     Active Substance: RAMIPRIL
     Route: 048
     Dates: start: 20140107, end: 20140107
  6. PROVENTIL [Concomitant]
     Active Substance: ALBUTEROL
     Dosage: 1X3 ML [2.5MG/3ML] PER DOSE
     Route: 055
     Dates: start: 20140108, end: 20140108
  7. ST JOSEPHS ASPIRIN [Concomitant]
     Dosage: 4X81MG PER DOSE
     Route: 048
     Dates: start: 20140107, end: 20140107
  8. PLAVIX [Concomitant]
     Active Substance: CLOPIDOGREL BISULFATE
     Route: 048
  9. TAMSULOSIN HCL [Concomitant]
     Active Substance: TAMSULOSIN
     Indication: BENIGN PROSTATIC HYPERPLASIA
     Dosage: 1X
     Route: 065
  10. SELENIUM [Concomitant]
     Active Substance: SELENIUM
     Indication: BLOOD PRESSURE
     Route: 065
  11. SELENIUM [Concomitant]
     Active Substance: SELENIUM
     Indication: BLOOD PRESSURE
     Route: 065
  12. LIPITOR [Concomitant]
     Active Substance: ATORVASTATIN CALCIUM
     Route: 048
     Dates: start: 20140108, end: 20140109
  13. PLAVIX [Concomitant]
     Active Substance: CLOPIDOGREL BISULFATE
     Dosage: 1X
     Route: 048
     Dates: start: 20140107, end: 20140109
  14. TYLENOL [Concomitant]
     Active Substance: ACETAMINOPHEN
     Dosage: 2X325 MG PER DOSE Q 4 HOURS AS NEEDED
     Route: 048
     Dates: start: 20140107, end: 20140109
  15. NITROSTAT [Concomitant]
     Active Substance: NITROGLYCERIN
     Dosage: EVERY 5 MINUTES AS NEEDED
     Route: 060
     Dates: start: 20140107, end: 20140109
  16. ALBUTEROL SULFATE. [Concomitant]
     Active Substance: ALBUTEROL SULFATE
     Indication: DYSPNOEA
     Dosage: 0.083%, 1 UNIT DOSE EVERY 4 HOURS AS NEEDED
     Route: 065
  17. LISINOPRIL. [Concomitant]
     Active Substance: LISINOPRIL
     Indication: BLOOD PRESSURE
     Dosage: 5-6 YEARS
     Route: 048
     Dates: end: 20140512
  18. RAMIPRIL. [Concomitant]
     Active Substance: RAMIPRIL
     Route: 048
     Dates: start: 20140108, end: 20140109
  19. ASPIRIN (ENTERIC COATED) [Concomitant]
     Route: 048
     Dates: start: 20140402
  20. ASPIRIN (ENTERIC COATED) [Concomitant]
     Route: 048
     Dates: start: 20140107, end: 20140109
  21. LOVENOX [Concomitant]
     Active Substance: ENOXAPARIN SODIUM
     Dosage: 1X
     Route: 058
     Dates: start: 20140107, end: 20140109
  22. FUROSEMIDE. [Concomitant]
     Active Substance: FUROSEMIDE
     Dosage: 1X
     Route: 042
     Dates: start: 20140107, end: 20140107
  23. PROTONIX [Concomitant]
     Active Substance: PANTOPRAZOLE SODIUM
     Dosage: 1X
     Route: 048
     Dates: start: 20140107, end: 20140109
  24. DUONEB [Concomitant]
     Active Substance: ALBUTEROL SULFATE\IPRATROPIUM BROMIDE
     Dosage: 1X3 ML [0.5-2.5MG/3ML] PER DOSE
     Route: 055
     Dates: start: 20140108, end: 20140109
  25. ALBUTEROL SULFATE. [Concomitant]
     Active Substance: ALBUTEROL SULFATE
     Indication: DYSPNOEA
     Dosage: 0.083%, 1 UNIT DOSE EVERY 4 HOURS AS NEEDED
     Route: 065
  26. LISINOPRIL. [Concomitant]
     Active Substance: LISINOPRIL
     Indication: BLOOD PRESSURE
     Route: 048
  27. CARDIZEM [Concomitant]
     Active Substance: DILTIAZEM HYDROCHLORIDE
     Dosage: 1X
     Route: 048
     Dates: start: 20140210
  28. OMEGA 3 [Concomitant]
     Active Substance: OMEGA-3 FATTY ACIDS
     Route: 065
  29. NORVASC [Concomitant]
     Active Substance: AMLODIPINE BESYLATE
     Indication: BLOOD PRESSURE
     Route: 048
     Dates: start: 20140107, end: 20140109
  30. NORVASC [Concomitant]
     Active Substance: AMLODIPINE BESYLATE
     Indication: BLOOD PRESSURE
     Route: 048
  31. ALBUTEROL SULFATE. [Concomitant]
     Active Substance: ALBUTEROL SULFATE
     Indication: COUGH
     Dosage: 0.083%, 1 UNIT DOSE EVERY 4 HOURS AS NEEDED
     Route: 065

REACTIONS (4)
  - Feeling abnormal [Unknown]
  - Atrial fibrillation [Recovered/Resolved]
  - Drug intolerance [Unknown]
  - Insomnia [Unknown]

NARRATIVE: CASE EVENT DATE: 20140204
